FAERS Safety Report 21080491 (Version 1)
Quarter: 2022Q3

REPORT INFORMATION
  Report Type: Spontaneous
  Country: US (occurrence: US)
  Receive Date: 20220714
  Receipt Date: 20220714
  Transmission Date: 20221027
  Serious: No
  Sender: FDA-Public Use
  Company Number: US-RECKITT BENCKISER HEALTHCARE INT LIMITED-RB-99640-2021

PATIENT
  Age: 28 Year
  Sex: Female
  Weight: 108.84 kg

DRUGS (1)
  1. MUCINEX DM MAXIMUM STRENGTH [Suspect]
     Active Substance: DEXTROMETHORPHAN HYDROBROMIDE\GUAIFENESIN
     Indication: Product used for unknown indication
     Dosage: TOOK 2 TABLETS ONCE
     Route: 048
     Dates: start: 20211113

REACTIONS (3)
  - Accidental overdose [Unknown]
  - Dizziness [Unknown]
  - Somnolence [Unknown]
